FAERS Safety Report 20449961 (Version 4)
Quarter: 2022Q1

REPORT INFORMATION
  Report Type: Spontaneous
  Country: US (occurrence: US)
  Receive Date: 20220209
  Receipt Date: 20220321
  Transmission Date: 20220423
  Serious: No
  Sender: FDA-Public Use
  Company Number: US-PFIZER INC-202200214900

PATIENT
  Age: 80 Year
  Sex: Female
  Weight: 58.06 kg

DRUGS (1)
  1. PAXLOVID [Suspect]
     Active Substance: NIRMATRELVIR\RITONAVIR
     Indication: COVID-19
     Dosage: 3 TABLETS TWICE A DAY
     Dates: start: 20220128, end: 20220129

REACTIONS (3)
  - Gastrooesophageal reflux disease [Not Recovered/Not Resolved]
  - Dysgeusia [Recovered/Resolved]
  - Product taste abnormal [Recovered/Resolved]
